FAERS Safety Report 6592352-1 (Version None)
Quarter: 2010Q1

REPORT INFORMATION
  Report Type: 
  Country: None (occurrence: None)
  Receive Date: 20100221
  Receipt Date: 20091209
  Transmission Date: 20100710
  Serious: Yes (Other)
  Sender: FDA-Public Use
  Company Number: US-ALLERGAN-0913663US

PATIENT
  Age: 39 Year
  Sex: Female
  Weight: 74.83 kg

DRUGS (1)
  1. BOTOX COSMETIC [Suspect]
     Indication: SKIN WRINKLING
     Dosage: 1.3 UNK, SINGLE
     Route: 030
     Dates: start: 20081008, end: 20081008

REACTIONS (2)
  - ABORTION SPONTANEOUS [None]
  - PREGNANCY [None]
